FAERS Safety Report 4719672-7 (Version None)
Quarter: 2005Q3

REPORT INFORMATION
  Report Type: 
  Country: None (occurrence: None)
  Receive Date: 20050721
  Receipt Date: 20040611
  Transmission Date: 20060218
  Serious: No
  Sender: FDA-Public Use
  Company Number: US-GLAXOSMITHKLINE-A0514335A

PATIENT
  Age: 70 Year
  Sex: Male
  Weight: 85.9 kg

DRUGS (6)
  1. AVANDIA [Suspect]
     Dosage: 2MG PER DAY
     Route: 048
  2. AMARYL [Concomitant]
  3. ALTACE [Concomitant]
  4. LIPITOR [Concomitant]
  5. TRINSICON [Concomitant]
  6. TRIAMTERENE AND HYDROCHLOROTHIAZIDE [Concomitant]

REACTIONS (1)
  - WEIGHT INCREASED [None]
